FAERS Safety Report 12089553 (Version 2)
Quarter: 2016Q2

REPORT INFORMATION
  Report Type: Spontaneous
  Country: US (occurrence: US)
  Receive Date: 20160218
  Receipt Date: 20160503
  Transmission Date: 20160815
  Serious: No
  Sender: FDA-Public Use
  Company Number: US-PFIZER INC-2016088906

PATIENT
  Age: 67 Year
  Sex: Female
  Weight: 53.92 kg

DRUGS (2)
  1. IBRANCE [Suspect]
     Active Substance: PALBOCICLIB
     Indication: BREAST CANCER
     Dosage: 100 MG, CYCLIC(1 CAPSULE DAILY FOR 21 DAYS OUT OF 28)
     Route: 048
     Dates: start: 20160125
  2. IBRANCE [Suspect]
     Active Substance: PALBOCICLIB
     Dosage: 100 MG, 1 CAPSULE, ONCE DAILY (QD), 21 DAY OUT OF 28
     Route: 048

REACTIONS (4)
  - Blood triglycerides decreased [Unknown]
  - Blood cholesterol decreased [Unknown]
  - Therapeutic response unexpected [Unknown]
  - Fatigue [Unknown]
